APPROVED DRUG PRODUCT: TRANCOPAL
Active Ingredient: CHLORMEZANONE
Strength: 200MG
Dosage Form/Route: TABLET;ORAL
Application: N011467 | Product #005
Applicant: SANOFI AVENTIS US LLC
Approved: Approved Prior to Jan 1, 1982 | RLD: No | RS: No | Type: DISCN